FAERS Safety Report 16886460 (Version 4)
Quarter: 2019Q4

REPORT INFORMATION
  Report Type: Report from Study
  Country: JP (occurrence: JP)
  Receive Date: 20191004
  Receipt Date: 20191225
  Transmission Date: 20200122
  Serious: Yes (Hospitalization)
  Sender: FDA-Public Use
  Company Number: JP-BAUSCH-BL-2018-035463

PATIENT
  Age: 38 Year
  Sex: Female

DRUGS (11)
  1. TOPSYM [Concomitant]
     Indication: PRODUCT USED FOR UNKNOWN INDICATION
     Dosage: EXCEPT LOTION FOR EYE
  2. NORVASC [Concomitant]
     Active Substance: AMLODIPINE BESYLATE
     Indication: PRODUCT USED FOR UNKNOWN INDICATION
     Dates: end: 20180910
  3. LUMICEF [Suspect]
     Active Substance: BRODALUMAB
     Dosage: INJECTION SYRINGE
     Route: 058
     Dates: start: 20190813
  4. OXAROL [Concomitant]
     Active Substance: MAXACALCITOL
     Indication: PRODUCT USED FOR UNKNOWN INDICATION
     Dosage: EXTERNAL USE
  5. AMLODIPINE [Concomitant]
     Active Substance: AMLODIPINE BESYLATE
     Indication: PRODUCT USED FOR UNKNOWN INDICATION
     Dates: start: 20180911
  6. HUMIRA [Concomitant]
     Active Substance: ADALIMUMAB
     Indication: PRODUCT USED FOR UNKNOWN INDICATION
  7. DIFLAL [Concomitant]
     Indication: PRODUCT USED FOR UNKNOWN INDICATION
  8. LUMICEF [Suspect]
     Active Substance: BRODALUMAB
     Indication: PUSTULAR PSORIASIS
     Dosage: INJECTION SYRINGE
     Route: 058
     Dates: start: 20180806, end: 20180806
  9. LUMICEF [Suspect]
     Active Substance: BRODALUMAB
     Dosage: INJECTION SYRINGE
     Route: 058
     Dates: start: 20180918, end: 20181016
  10. LUMICEF [Suspect]
     Active Substance: BRODALUMAB
     Dosage: INJECTION SYRINGE
     Route: 058
     Dates: start: 20180814, end: 20180827
  11. LUMICEF [Suspect]
     Active Substance: BRODALUMAB
     Dosage: INJECTION SYRINGE
     Route: 058
     Dates: start: 20181105, end: 20181119

REACTIONS (4)
  - Oligohydramnios [Unknown]
  - Injury associated with device [Recovered/Resolved]
  - Premature delivery [Recovered/Resolved]
  - Maternal exposure during pregnancy [Unknown]

NARRATIVE: CASE EVENT DATE: 2018
